FAERS Safety Report 10227870 (Version 2)
Quarter: 2014Q2

REPORT INFORMATION
  Report Type: Spontaneous
  Country: US (occurrence: US)
  Receive Date: 20140610
  Receipt Date: 20140610
  Transmission Date: 20141212
  Serious: Yes (Hospitalization)
  Sender: FDA-Public Use
  Company Number: US-AMGEN-USASP2014038024

PATIENT
  Age: 36 Year
  Sex: Male
  Weight: 98 kg

DRUGS (1)
  1. SENSIPAR [Suspect]
     Indication: PRODUCT USED FOR UNKNOWN INDICATION
     Dosage: 30 MG, QD
     Route: 048
     Dates: start: 20131029

REACTIONS (3)
  - Headache [Recovered/Resolved]
  - Migraine [Unknown]
  - Drug intolerance [Unknown]
